FAERS Safety Report 6046737-2 (Version None)
Quarter: 2009Q1

REPORT INFORMATION
  Report Type: 
  Country: None (occurrence: None)
  Receive Date: 20090122
  Receipt Date: 20081202
  Transmission Date: 20090719
  Serious: Yes (Hospitalization)
  Sender: FDA-Public Use
  Company Number: BE-PFIZER INC-2008100056

PATIENT

DRUGS (13)
  1. BLINDED *PLACEBO [Suspect]
     Indication: COLORECTAL CANCER METASTATIC
     Dosage: 37.5 MG, QD 4W/6W
     Route: 048
     Dates: start: 20081028, end: 20081121
  2. BLINDED SUNITINIB MALATE [Suspect]
     Indication: COLORECTAL CANCER METASTATIC
     Dosage: 37.5 MG, QD 4W/6W
     Route: 048
     Dates: start: 20081028, end: 20081121
  3. IRINOTECAN HCL [Suspect]
     Indication: COLORECTAL CANCER METASTATIC
     Dosage: 360 MG, EVERY 14 DAYS
     Route: 042
     Dates: start: 20080212, end: 20081110
  4. FLUOROURACIL [Suspect]
     Indication: COLORECTAL CANCER METASTATIC
     Dosage: 5621 MG, EVERY 14 DAYS
     Dates: start: 20080212, end: 20081110
  5. CALCIUM FOLINATE [Suspect]
     Indication: COLORECTAL CANCER METASTATIC
     Dosage: 401 MG, EVERY 14 DAYS
     Route: 042
     Dates: start: 20080212, end: 20081110
  6. METFORMIN HYDROCHLORIDE [Concomitant]
     Route: 048
     Dates: start: 20070101
  7. ATENOLOL/HYDROCHLOROTHIAZIDE [Concomitant]
     Route: 048
     Dates: start: 20040101
  8. BROMAZEPAM [Concomitant]
     Route: 048
     Dates: start: 19920701
  9. CLONAZEPAM [Concomitant]
     Route: 048
     Dates: start: 19940702
  10. ATENOLOL [Concomitant]
     Route: 048
     Dates: start: 20040101
  11. LACTULOSE [Concomitant]
     Route: 048
     Dates: start: 20071127
  12. MORPHINE SULFATE [Concomitant]
     Route: 048
     Dates: start: 20080311
  13. OMEPRAZOLE [Concomitant]
     Route: 048
     Dates: start: 20081101

REACTIONS (1)
  - VENTRICULAR TACHYCARDIA [None]
